FAERS Safety Report 18988325 (Version 1)
Quarter: 2021Q1

REPORT INFORMATION
  Report Type: Spontaneous
  Country: JP (occurrence: JP)
  Receive Date: 20210309
  Receipt Date: 20210309
  Transmission Date: 20210420
  Serious: Yes (Other)
  Sender: FDA-Public Use
  Company Number: JP-DSJP-DSJ-2021-106239AA

PATIENT
  Age: 84 Year
  Sex: Male

DRUGS (3)
  1. ANTIHYPERTENSIVES [Concomitant]
     Active Substance: UNSPECIFIED INGREDIENT
     Indication: HYPERTENSION
     Dosage: UNK
     Route: 048
  2. ANTICANCER DRUG [Concomitant]
     Indication: PROSTATE CANCER
     Dosage: UNK
     Route: 048
  3. LIXIANA TABLETS [Suspect]
     Active Substance: EDOXABAN TOSYLATE
     Indication: PRODUCT USED FOR UNKNOWN INDICATION
     Dosage: 30MG/DAY
     Route: 048

REACTIONS (5)
  - Pain in extremity [Not Recovered/Not Resolved]
  - Blood urine present [Not Recovered/Not Resolved]
  - Intentional product misuse [Unknown]
  - Haemorrhoids [Not Recovered/Not Resolved]
  - Hypoaesthesia [Not Recovered/Not Resolved]
